FAERS Safety Report 17353133 (Version 1)
Quarter: 2020Q1

REPORT INFORMATION
  Report Type: Spontaneous
  Country: US (occurrence: US)
  Receive Date: 20200115
  Receipt Date: 20200115
  Transmission Date: 20200409
  Serious: Yes (Hospitalization)
  Sender: FDA-Public Use
  Company Number: None

PATIENT
  Age: 75 Year
  Sex: Male
  Weight: 47.17 kg

DRUGS (1)
  1. COVERA-HS [Suspect]
     Active Substance: VERAPAMIL HYDROCHLORIDE
     Indication: HYPERTENSION
     Route: 048
     Dates: start: 20100610, end: 20191231

REACTIONS (2)
  - Constipation [None]
  - Colitis ischaemic [None]

NARRATIVE: CASE EVENT DATE: 20191231
